FAERS Safety Report 9342963 (Version 2)
Quarter: 2014Q1

REPORT INFORMATION
  Report Type: Spontaneous
  Country: US (occurrence: US)
  Receive Date: 20130611
  Receipt Date: 20140212
  Transmission Date: 20141002
  Serious: Yes (Hospitalization, Other)
  Sender: FDA-Public Use
  Company Number: US-B.I. PHARMACEUTICALS,INC./RIDGEFIELD-2013-BI-16095BP

PATIENT
  Sex: Female
  Weight: 117.93 kg

DRUGS (16)
  1. PRADAXA [Suspect]
     Indication: ATRIAL FIBRILLATION
     Dosage: 300 MG
     Dates: start: 201108, end: 20111104
  2. LISINOPRIL [Suspect]
     Indication: PRODUCT USED FOR UNKNOWN INDICATION
     Dosage: 40 MG
     Dates: end: 20111104
  3. ASPIRIN [Suspect]
     Indication: PRODUCT USED FOR UNKNOWN INDICATION
     Dosage: 325 MG
     Dates: end: 20111104
  4. CENTRUM SILVER [Concomitant]
  5. CLARITIN [Concomitant]
     Dosage: 10 MG
     Route: 048
  6. COREG [Concomitant]
     Indication: HYPERTENSION
     Dosage: 25 MG
     Route: 048
  7. FLEXERIL [Concomitant]
     Dosage: 30 MG
     Route: 048
  8. FLOVENT [Concomitant]
     Dosage: 4 PUF
  9. ICY HOT [Concomitant]
  10. NORVASC [Concomitant]
     Indication: HYPERTENSION
     Dosage: 5 MG
     Route: 048
  11. PREVACID [Concomitant]
     Dosage: 30 MG
  12. VITAMIN B12 [Concomitant]
  13. PRO-AIR [Concomitant]
  14. ROBITUSSIN [Concomitant]
  15. ULTRAM [Concomitant]
  16. ZOFRAN [Concomitant]

REACTIONS (7)
  - Lower gastrointestinal haemorrhage [Recovered/Resolved]
  - Renal failure acute [Recovered/Resolved]
  - Haemorrhagic anaemia [Recovered/Resolved]
  - Rhabdomyolysis [Unknown]
  - Toxicity to various agents [Unknown]
  - Coagulopathy [Unknown]
  - Epistaxis [Unknown]
